FAERS Safety Report 25795195 (Version 2)
Quarter: 2025Q4

REPORT INFORMATION
  Report Type: Spontaneous
  Country: US (occurrence: US)
  Receive Date: 20250912
  Receipt Date: 20251016
  Transmission Date: 20260118
  Serious: No
  Sender: ASTELLAS
  Company Number: US-ASTELLAS-2025-AER-048403

PATIENT
  Age: 73 Year
  Sex: Female

DRUGS (3)
  1. VEOZAH [Suspect]
     Active Substance: FEZOLINETANT
     Indication: Menopausal symptoms
     Dosage: 45MG, ONCE DAILY?DURATION OF DRUG ADMINISTRATION- ABOUT 5 MONTHS
     Route: 065
     Dates: start: 202501, end: 2025
  2. VEOZAH [Suspect]
     Active Substance: FEZOLINETANT
     Route: 065
     Dates: start: 202508
  3. PREMPRO [Concomitant]
     Active Substance: ESTROGENS, CONJUGATED\MEDROXYPROGESTERONE ACETATE
     Indication: Product used for unknown indication
     Route: 065

REACTIONS (3)
  - Hot flush [Recovering/Resolving]
  - Hyperhidrosis [Recovering/Resolving]
  - Loss of therapeutic response [Unknown]

NARRATIVE: CASE EVENT DATE: 20250801
